FAERS Safety Report 7408066-1 (Version None)
Quarter: 2011Q2

REPORT INFORMATION
  Report Type: 
  Country: None (occurrence: None)
  Receive Date: 20110408
  Receipt Date: 20110408
  Transmission Date: 20111010
  Serious: Yes (Life-Threatening, Other)
  Sender: FDA-Public Use
  Company Number: None

PATIENT
  Age: 20 Month
  Sex: Male
  Weight: 9.0719 kg

DRUGS (2)
  1. HYLAND'S TEETHING TABLETS 3X HSUS HYLAND'S [Suspect]
     Indication: TEETHING
     Dosage: 1-2 TABLETS AS NEEDED PO 12 MONTHS OR MORE
     Route: 048
     Dates: start: 20110215, end: 20110215
  2. HYLAND'S TEETHING TABLETS 3X HSUS ??? HYLAND'S [Suspect]
     Indication: TEETHING
     Dosage: 1-2 TABLETS AS NEEDED PO 12 MONTHS OR MORE
     Route: 048
     Dates: start: 20110215, end: 20110215

REACTIONS (8)
  - ERYTHEMA [None]
  - LIP SWELLING [None]
  - SWELLING FACE [None]
  - RASH [None]
  - OEDEMA PERIPHERAL [None]
  - CRYING [None]
  - URTICARIA [None]
  - JOINT SWELLING [None]
